FAERS Safety Report 10152152 (Version 2)
Quarter: 2014Q2

REPORT INFORMATION
  Report Type: Spontaneous
  Country: US (occurrence: US)
  Receive Date: 20140505
  Receipt Date: 20140529
  Transmission Date: 20141212
  Serious: Yes (Hospitalization, Other)
  Sender: FDA-Public Use
  Company Number: US-SA-2014SA056729

PATIENT
  Sex: Male

DRUGS (2)
  1. LANTUS SOLOSTAR [Suspect]
     Indication: PRODUCT USED FOR UNKNOWN INDICATION
     Route: 058
     Dates: start: 20140210
  2. SOLOSTAR [Concomitant]
     Dates: start: 20140210

REACTIONS (4)
  - Investigation [Unknown]
  - Cerebrovascular accident [Unknown]
  - Memory impairment [Unknown]
  - Drug dose omission [Unknown]
